FAERS Safety Report 4334987-2 (Version None)
Quarter: 2004Q2

REPORT INFORMATION
  Report Type: 
  Country: None (occurrence: None)
  Receive Date: 20040408
  Receipt Date: 20040319
  Transmission Date: 20050107
  Serious: Yes (Hospitalization)
  Sender: FDA-Public Use
  Company Number: 362166

PATIENT

DRUGS (3)
  1. PEG-INTERFERON ALFA 2A (RO 25-8310) [Suspect]
     Indication: HEPATITIS C
     Route: 058
  2. RIBAVIRIN [Suspect]
     Indication: HEPATITIS C
     Route: 048
  3. BLINDED POLYENYLPHOSPHATIDYLCHOLINE [Suspect]
     Indication: HEPATITIS C
     Route: 065

REACTIONS (1)
  - AORTIC ANEURYSM [None]
